FAERS Safety Report 6830980-6 (Version None)
Quarter: 2010Q3

REPORT INFORMATION
  Report Type: 
  Country: None (occurrence: None)
  Receive Date: 20100712
  Receipt Date: 20100702
  Transmission Date: 20110219
  Serious: Yes (Hospitalization, Other)
  Sender: FDA-Public Use
  Company Number: US-ABBOTT-10P-163-0645854-00

PATIENT
  Sex: Male
  Weight: 28.602 kg

DRUGS (4)
  1. HUMIRA [Suspect]
     Indication: CROHN'S DISEASE
     Dates: start: 20100101, end: 20100501
  2. HUMIRA [Suspect]
     Dates: start: 20100601
  3. CIPROFLOXACIN HCL [Concomitant]
     Indication: CROHN'S DISEASE
  4. FLAGYL [Concomitant]
     Indication: CROHN'S DISEASE

REACTIONS (9)
  - CLOSTRIDIAL INFECTION [None]
  - CROHN'S DISEASE [None]
  - DECREASED APPETITE [None]
  - DIARRHOEA [None]
  - DRUG INEFFECTIVE [None]
  - HAEMATOCHEZIA [None]
  - INJECTION SITE PAIN [None]
  - PYREXIA [None]
  - VOMITING [None]
